FAERS Safety Report 9422976 (Version 1)
Quarter: 2013Q3

REPORT INFORMATION
  Report Type: Spontaneous
  Country: IN (occurrence: IN)
  Receive Date: 20130726
  Receipt Date: 20130726
  Transmission Date: 20140515
  Serious: Yes (Hospitalization, Other)
  Sender: FDA-Public Use
  Company Number: IN-JHP PHARMACEUTICALS, LLC-JHP201300474

PATIENT
  Age: 25 Year
  Sex: Female
  Weight: 60 kg

DRUGS (5)
  1. ADRENALIN [Suspect]
     Indication: VASOCONSTRICTION
     Dosage: 1 MG, SINGLE
  2. LIGNOCAINE [Suspect]
     Indication: LOCAL ANAESTHESIA
     Dosage: 20 ML, SINGLE
  3. GLYCOPYRROLATE [Concomitant]
     Dosage: 0.2 MG, SINGLE
     Route: 030
  4. PENTAZOCINE [Concomitant]
     Dosage: 30 MG, SINGLE
     Route: 030
  5. PROMETHAZINE [Concomitant]
     Dosage: 25 MG, SINGLE
     Route: 030

REACTIONS (7)
  - Prescribed overdose [Recovered/Resolved]
  - Blood pressure increased [Recovering/Resolving]
  - Electrocardiogram change [Recovered/Resolved]
  - Restlessness [Recovered/Resolved]
  - Tachycardia [Recovered/Resolved]
  - Headache [Recovered/Resolved]
  - Chest pain [Recovered/Resolved]
